FAERS Safety Report 7498320-X (Version None)
Quarter: 2011Q2

REPORT INFORMATION
  Report Type: 
  Country: None (occurrence: None)
  Receive Date: 20110524
  Receipt Date: 20110427
  Transmission Date: 20111010
  Serious: Yes (Other)
  Sender: FDA-Public Use
  Company Number: US-BAYER-2011-013856

PATIENT
  Age: 23 Year
  Sex: Female
  Weight: 56.689 kg

DRUGS (5)
  1. YASMIN [Suspect]
     Indication: CONTRACEPTION
     Dosage: UNK
     Route: 048
     Dates: start: 20070424, end: 20080401
  2. YAZ [Suspect]
     Dosage: UNK
     Route: 048
     Dates: start: 20080501
  3. AMITIZA [Concomitant]
     Dosage: UNK
     Route: 048
     Dates: start: 20080101
  4. YAZ [Suspect]
     Dosage: UNK
     Dates: start: 20080510, end: 20090901
  5. YAZ [Concomitant]
     Dosage: UNK UNK, QD
     Route: 048
     Dates: start: 20080501

REACTIONS (3)
  - CHOLECYSTECTOMY [None]
  - CHOLECYSTITIS CHRONIC [None]
  - BILIARY DYSKINESIA [None]
